FAERS Safety Report 5777091-9 (Version None)
Quarter: 2008Q2

REPORT INFORMATION
  Report Type: 
  Country: None (occurrence: None)
  Receive Date: 20080618
  Receipt Date: 20080609
  Transmission Date: 20081010
  Serious: Yes (Hospitalization, Other)
  Sender: FDA-Public Use
  Company Number: US-ABBOTT-08P-163-0455279-00

PATIENT
  Sex: Male
  Weight: 80.812 kg

DRUGS (17)
  1. HUMIRA [Suspect]
     Indication: RHEUMATOID ARTHRITIS
     Route: 058
     Dates: start: 20030929
  2. LEFLUNOMIDE [Concomitant]
     Indication: DRUG USE FOR UNKNOWN INDICATION
     Route: 048
  3. BLOOD THINNER [Concomitant]
     Indication: PROPHYLAXIS
     Dosage: FOR 10 DAYS AFTER FEMUR SURGERY
  4. BLOOD THINNER [Concomitant]
     Indication: FEMUR FRACTURE
  5. HORMONE THERAPY [Concomitant]
     Indication: HORMONE REPLACEMENT THERAPY
     Route: 050
  6. HORMONE THERAPY [Concomitant]
     Indication: PROSTATE CANCER
  7. ASPIRIN [Concomitant]
     Indication: PROPHYLAXIS
     Route: 048
  8. FOLIC ACID [Concomitant]
     Indication: VITAMIN SUPPLEMENTATION
     Route: 048
  9. CALCIUM [Concomitant]
     Indication: MINERAL SUPPLEMENTATION
     Route: 048
  10. LISINOPRIL [Concomitant]
     Indication: HYPERTENSION
  11. NIFEDIPINE [Concomitant]
     Indication: DRUG USE FOR UNKNOWN INDICATION
     Route: 048
  12. SERTRALINE [Concomitant]
     Indication: HOT FLUSH
     Route: 048
  13. METOPROLOL [Concomitant]
     Indication: HYPERTENSION
     Route: 048
  14. TOMAX [Concomitant]
     Indication: DRUG USE FOR UNKNOWN INDICATION
     Route: 048
  15. SALBUTAMOL SULFATE [Concomitant]
     Indication: ASBESTOSIS
     Dosage: ROUTE: NEBULIZER
  16. PREDNISONE TAB [Concomitant]
     Indication: ASBESTOSIS
  17. BUDESONIDE [Concomitant]
     Indication: ASBESTOSIS

REACTIONS (7)
  - COLONIC OBSTRUCTION [None]
  - CORONARY ARTERY DISEASE [None]
  - FEMUR FRACTURE [None]
  - NEMATODIASIS [None]
  - POOR PERIPHERAL CIRCULATION [None]
  - PROSTATE CANCER RECURRENT [None]
  - PROSTATIC SPECIFIC ANTIGEN INCREASED [None]
